FAERS Safety Report 6012465-2 (Version None)
Quarter: 2008Q4

REPORT INFORMATION
  Report Type: 
  Country: None (occurrence: None)
  Receive Date: 20081218
  Receipt Date: 20081209
  Transmission Date: 20090506
  Serious: Yes (Death, Other)
  Sender: FDA-Public Use
  Company Number: US-BAXTER-2008BH013714

PATIENT
  Sex: Female

DRUGS (5)
  1. HEPARIN SODIUM INJECTION [Suspect]
     Indication: CHEMOTHERAPY
     Route: 065
     Dates: start: 20071101, end: 20071201
  2. HEPARIN SODIUM INJECTION [Suspect]
     Indication: STENT PLACEMENT
     Route: 065
     Dates: start: 20071101, end: 20071201
  3. HEPARIN SODIUM INJECTION [Suspect]
     Route: 065
     Dates: start: 20071224, end: 20071224
  4. HEPARIN SODIUM INJECTION [Suspect]
     Route: 065
     Dates: start: 20071224, end: 20071224
  5. CHEMOTHERAPY [Concomitant]
     Indication: DRUG USE FOR UNKNOWN INDICATION
     Route: 065

REACTIONS (6)
  - ANOREXIA [None]
  - BALANCE DISORDER [None]
  - DEATH [None]
  - HEADACHE [None]
  - HYPOTENSION [None]
  - UNRESPONSIVE TO STIMULI [None]
